FAERS Safety Report 15450315 (Version 3)
Quarter: 2019Q1

REPORT INFORMATION
  Report Type: Spontaneous
  Country: CA (occurrence: CA)
  Receive Date: 20181001
  Receipt Date: 20190214
  Transmission Date: 20190417
  Serious: Yes (Other)
  Sender: FDA-Public Use
  Company Number: CA-AUROBINDO-AUR-APL-2018-047730

PATIENT
  Age: 59 Year
  Sex: Male

DRUGS (2)
  1. MOXIFLOXACIN. [Concomitant]
     Active Substance: MOXIFLOXACIN
     Indication: PRODUCT USED FOR UNKNOWN INDICATION
     Dosage: 400 MILLIGRAM, DAILY
     Route: 048
  2. AURO-METRONIDAZOLE CAPSULES [Suspect]
     Active Substance: METRONIDAZOLE
     Indication: OSTEOMYELITIS
     Dosage: 750 MILLIGRAM, FOUR TIMES/DAY FOR SIX WEEKS
     Route: 048

REACTIONS (6)
  - Gait disturbance [Recovered/Resolved]
  - Dysarthria [Recovered/Resolved]
  - Cerebellar syndrome [Recovered/Resolved]
  - Neurotoxicity [Recovered/Resolved]
  - Ataxia [Recovered/Resolved]
  - Dysmetria [Recovered/Resolved]
